FAERS Safety Report 20087049 (Version 1)
Quarter: 2021Q4

REPORT INFORMATION
  Report Type: Spontaneous
  Country: GB (occurrence: GB)
  Receive Date: 20211118
  Receipt Date: 20211118
  Transmission Date: 20220304
  Serious: Yes (Death)
  Sender: FDA-Public Use
  Company Number: None

PATIENT
  Sex: Female

DRUGS (1)
  1. GLYCOPYRROLATE [Suspect]
     Active Substance: GLYCOPYRROLATE
     Indication: Ill-defined disorder
     Dosage: 200MICROGRAMS/1ML SOLUTION FOR INJECTION
     Route: 065

REACTIONS (2)
  - Death [Fatal]
  - Medication error [Unknown]
